FAERS Safety Report 26083513 (Version 1)
Quarter: 2025Q4

REPORT INFORMATION
  Report Type: Spontaneous
  Country: US (occurrence: None)
  Receive Date: 20251124
  Receipt Date: 20251124
  Transmission Date: 20260118
  Serious: Yes (Disabling)
  Sender: FDA-CTU
  Company Number: None

PATIENT
  Age: 83 Year
  Sex: Male
  Weight: 83.25 kg

DRUGS (11)
  1. TRAMADOL HYDROCHLORIDE [Suspect]
     Active Substance: TRAMADOL HYDROCHLORIDE
     Indication: Back pain
     Dosage: OTHER FREQUENCY : AS NEED EVERY 6 HR;?
     Route: 048
     Dates: start: 20250311, end: 20250624
  2. TRAMADOL HYDROCHLORIDE [Suspect]
     Active Substance: TRAMADOL HYDROCHLORIDE
     Indication: Compression fracture
  3. ROSUVASTATIN [Concomitant]
     Active Substance: ROSUVASTATIN
  4. FUROSEMIDE [Concomitant]
     Active Substance: FUROSEMIDE
  5. TAMSULOSIN [Concomitant]
     Active Substance: TAMSULOSIN
  6. LOSARTAN [Concomitant]
     Active Substance: LOSARTAN
  7. Meijer Mens Gummy Multivitamins [Concomitant]
  8. Magnesium Citrate gummies [Concomitant]
  9. POTASSIUM GLUCONATE [Concomitant]
     Active Substance: POTASSIUM GLUCONATE
  10. VITAMIN D3 [Concomitant]
     Active Substance: CHOLECALCIFEROL
  11. Bausch + Lomb PreserVision-AREDS2 [Concomitant]

REACTIONS (5)
  - Cough [None]
  - Therapeutic product effect incomplete [None]
  - Weight decreased [None]
  - Secretion discharge [None]
  - Oesophageal hypomotility [None]

NARRATIVE: CASE EVENT DATE: 20250311
